FAERS Safety Report 24928548 (Version 1)
Quarter: 2025Q1

REPORT INFORMATION
  Report Type: Spontaneous
  Country: BE (occurrence: BE)
  Receive Date: 20250205
  Receipt Date: 20250205
  Transmission Date: 20250409
  Serious: Yes (Disabling)
  Sender: PFIZER
  Company Number: BE-PFIZER INC-202400287620

PATIENT
  Sex: Female

DRUGS (2)
  1. LORLATINIB [Suspect]
     Active Substance: LORLATINIB
  2. LORLATINIB [Suspect]
     Active Substance: LORLATINIB
     Dates: end: 202412

REACTIONS (2)
  - Peripheral sensorimotor neuropathy [Not Recovered/Not Resolved]
  - Condition aggravated [Not Recovered/Not Resolved]
